FAERS Safety Report 25633622 (Version 1)
Quarter: 2025Q3

REPORT INFORMATION
  Report Type: Spontaneous
  Country: CN (occurrence: CN)
  Receive Date: 20250801
  Receipt Date: 20250801
  Transmission Date: 20251021
  Serious: Yes (Other)
  Sender: MERCK SHARP & DOHME LLC
  Company Number: CN-009507513-2313653

PATIENT
  Age: 86 Year
  Sex: Male
  Weight: 53 kg

DRUGS (1)
  1. CILASTATIN SODIUM\IMIPENEM [Suspect]
     Active Substance: CILASTATIN SODIUM\IMIPENEM
     Indication: Pneumonia
     Route: 041
     Dates: start: 20250717, end: 20250722

REACTIONS (6)
  - White blood cells urine positive [Recovering/Resolving]
  - Chromaturia [Recovering/Resolving]
  - Red blood cells urine positive [Recovering/Resolving]
  - Urobilinogen urine increased [Recovering/Resolving]
  - Bilirubin urine present [Recovering/Resolving]
  - Protein urine present [Recovered/Resolved]

NARRATIVE: CASE EVENT DATE: 20250719
